FAERS Safety Report 5010543-8 (Version None)
Quarter: 2006Q2

REPORT INFORMATION
  Report Type: 
  Country: None (occurrence: None)
  Receive Date: 20060523
  Receipt Date: 20060508
  Transmission Date: 20061013
  Serious: Yes (Hospitalization)
  Sender: FDA-Public Use
  Company Number: 2006US003059

PATIENT
  Age: 71 Year
  Sex: Female
  Weight: 69.1 kg

DRUGS (6)
  1. ALOXI [Suspect]
     Indication: PROPHYLAXIS OF NAUSEA AND VOMITING
     Dosage: 0.25 MG, SINGLE, INTRAVENOUS
     Route: 042
     Dates: start: 20060314, end: 20060314
  2. DECADRON SRC [Concomitant]
  3. SODIUM CHLORIDE [Concomitant]
  4. CYTOXAN [Concomitant]
  5. ADRIAMYCIN PFS [Concomitant]
  6. NEXIUM [Concomitant]

REACTIONS (4)
  - DEHYDRATION [None]
  - HEADACHE [None]
  - NAUSEA [None]
  - SELF-MEDICATION [None]
